FAERS Safety Report 9302614 (Version 1)
Quarter: 2013Q2

REPORT INFORMATION
  Report Type: Spontaneous
  Country: CH (occurrence: CH)
  Receive Date: 20130522
  Receipt Date: 20130523
  Transmission Date: 20140414
  Serious: Yes (Death, Hospitalization)
  Sender: FDA-Public Use
  Company Number: CH-ROCHE-1225387

PATIENT
  Age: 59 Year
  Sex: Female

DRUGS (13)
  1. ROCEPHIN [Suspect]
     Indication: PRODUCT USED FOR UNKNOWN INDICATION
     Route: 041
     Dates: start: 20130418, end: 20130426
  2. CEFUROXIM [Suspect]
     Indication: URINARY TRACT INFECTION
     Route: 048
     Dates: start: 20130328, end: 20130403
  3. CIPROFLOXACIN [Suspect]
     Indication: PRODUCT USED FOR UNKNOWN INDICATION
     Route: 048
     Dates: start: 20130411, end: 20130415
  4. BRIVEX [Suspect]
     Indication: HERPES DERMATITIS
     Route: 048
     Dates: start: 20130328, end: 20130403
  5. PANTOPRAZOL [Suspect]
     Indication: PROPHYLAXIS
     Route: 048
     Dates: start: 20130330
  6. BOTOX [Suspect]
     Indication: PRODUCT USED FOR UNKNOWN INDICATION
     Dosage: 1DF
     Route: 058
     Dates: start: 2013, end: 2013
  7. STILNOX [Suspect]
     Indication: PRODUCT USED FOR UNKNOWN INDICATION
     Route: 048
     Dates: start: 20130404, end: 20130415
  8. FLUCONAZOLE [Suspect]
     Indication: PRODUCT USED FOR UNKNOWN INDICATION
     Route: 048
     Dates: start: 20130404, end: 20130404
  9. TERBINAFIN [Suspect]
     Indication: PRODUCT USED FOR UNKNOWN INDICATION
     Dosage: 1 DF
     Route: 061
     Dates: start: 20130404, end: 20130415
  10. ACICLOVIR [Suspect]
     Indication: PRODUCT USED FOR UNKNOWN INDICATION
     Dosage: 1 DF
     Route: 061
     Dates: start: 20130404, end: 20130415
  11. SPIRICORT [Suspect]
     Indication: VIITH NERVE PARALYSIS
     Route: 048
     Dates: start: 20130330
  12. ELTROXIN [Suspect]
     Indication: HYPOTHYROIDISM
     Route: 048
  13. ECHINACEA PURPUREA [Suspect]
     Indication: PRODUCT USED FOR UNKNOWN INDICATION
     Dosage: 1 DF
     Route: 048
     Dates: start: 20130328, end: 201304

REACTIONS (11)
  - Vasculitis [Fatal]
  - Vascular purpura [Fatal]
  - Delirium [Unknown]
  - Myalgia [Unknown]
  - Rhabdomyolysis [Recovered/Resolved]
  - Haematuria [Unknown]
  - Renal impairment [Recovered/Resolved]
  - Abdominal pain [Unknown]
  - Arthralgia [Unknown]
  - Hepatocellular injury [Recovering/Resolving]
  - Subarachnoid haemorrhage [Recovered/Resolved with Sequelae]
